FAERS Safety Report 12867424 (Version 1)
Quarter: 2016Q4

REPORT INFORMATION
  Report Type: Report from Study
  Country: JP (occurrence: JP)
  Receive Date: 20161020
  Receipt Date: 20161020
  Transmission Date: 20170207
  Serious: Yes (Other)
  Sender: FDA-Public Use
  Company Number: JP-REGENERON PHARMACEUTICALS, INC.-2016-22703

PATIENT

DRUGS (2)
  1. EYLEA [Suspect]
     Active Substance: AFLIBERCEPT
     Indication: AGE-RELATED MACULAR DEGENERATION
     Dosage: 3 INJECTIONS, Q1MON
  2. EYLEA [Suspect]
     Active Substance: AFLIBERCEPT
     Dosage: 4 INJECTIONS, Q2MON

REACTIONS (2)
  - Dry age-related macular degeneration [Unknown]
  - Blindness [Unknown]
